FAERS Safety Report 9875368 (Version 2)
Quarter: 2014Q1

REPORT INFORMATION
  Report Type: Other
  Country: US (occurrence: US)
  Receive Date: 20140206
  Receipt Date: 20140206
  Transmission Date: 20141002
  Serious: No
  Sender: FDA-Public Use
  Company Number: US-ACORDA-ACO_36339_2013

PATIENT
  Age: 56 Year
  Sex: Female
  Weight: 62.13 kg

DRUGS (5)
  1. AMPYRA [Suspect]
     Indication: GAIT DISTURBANCE
     Dosage: 10 MG, Q 12 HRS
     Route: 048
     Dates: start: 20130509
  2. VALIUM [Concomitant]
     Indication: ANXIETY
     Dosage: 10 MG, PRN TAKES 1/4 TABLET AT A TIME
     Route: 048
  3. MULTIVITAMIN [Concomitant]
     Dosage: UNK, QD
     Route: 048
  4. MOTRIN [Concomitant]
     Indication: PRODUCT USED FOR UNKNOWN INDICATION
     Dosage: 200 MG, PRN
     Route: 048
     Dates: start: 20130430
  5. TRAZODONE HCL [Concomitant]
     Indication: SLEEP DISORDER
     Dosage: 50-100MG QHS
     Route: 048

REACTIONS (5)
  - Gait disturbance [Recovered/Resolved]
  - Fatigue [Recovered/Resolved]
  - Insomnia [Recovered/Resolved]
  - Constipation [Recovered/Resolved]
  - Drug ineffective [Unknown]
